FAERS Safety Report 18831890 (Version 1)
Quarter: 2021Q1

REPORT INFORMATION
  Report Type: Other
  Country: CA (occurrence: CA)
  Receive Date: 20210203
  Receipt Date: 20210203
  Transmission Date: 20210419
  Serious: Yes (Other)
  Sender: FDA-Public Use
  Company Number: CA-ROCHE-2648984

PATIENT
  Sex: Female

DRUGS (3)
  1. CELEBREX [Concomitant]
     Active Substance: CELECOXIB
  2. OXAZEPAM. [Concomitant]
     Active Substance: OXAZEPAM
  3. OCREVUS [Suspect]
     Active Substance: OCRELIZUMAB
     Indication: RELAPSING-REMITTING MULTIPLE SCLEROSIS
     Dosage: 300 MG AT DAY 0 AND DAY 14 FOLLOWED BY SUBSEQUENT DOSE OF 600 MG, ONCE IN 6 MONTHS
     Route: 042
     Dates: start: 20190716

REACTIONS (9)
  - Pancreatitis [Recovered/Resolved]
  - Asthenia [Recovering/Resolving]
  - Pain [Recovered/Resolved]
  - Somnolence [Not Recovered/Not Resolved]
  - Fatigue [Recovering/Resolving]
  - Lethargy [Not Recovered/Not Resolved]
  - Gait disturbance [Recovered/Resolved]
  - Visual impairment [Not Recovered/Not Resolved]
  - Blood pressure increased [Not Recovered/Not Resolved]
